FAERS Safety Report 13131302 (Version 2)
Quarter: 2020Q3

REPORT INFORMATION
  Report Type: Report from Study
  Country: IT (occurrence: DE)
  Receive Date: 20170119
  Receipt Date: 20170123
  Transmission Date: 20201105
  Serious: Yes (Hospitalization)
  Sender: FDA-Public Use
  Company Number: IT-JNJFOC-20170114399

PATIENT
  Age: 60 Year
  Sex: Female
  Weight: 91 kg

DRUGS (4)
  1. PLD [Suspect]
     Active Substance: DOXORUBICIN HYDROCHLORIDE
     Indication: OVARIAN CANCER
     Dosage: INTENDED AND ADMINISTERED DOSE (30.0) UNITS UNSPECIFIED
     Route: 042
     Dates: start: 20160816
  2. TRABECTEDIN [Suspect]
     Active Substance: TRABECTEDIN
     Route: 042
  3. TRABECTEDIN [Suspect]
     Active Substance: TRABECTEDIN
     Indication: OVARIAN CANCER
     Dosage: INTENDED AND ADMINISTERED DOSE (1.1) UNITS UNSPECIFIED
     Route: 042
     Dates: start: 20160816
  4. PLD [Suspect]
     Active Substance: DOXORUBICIN HYDROCHLORIDE
     Route: 042

REACTIONS (2)
  - Blood creatine phosphokinase increased [Recovered/Resolved]
  - Myalgia [Recovered/Resolved]

NARRATIVE: CASE EVENT DATE: 20170112
